FAERS Safety Report 5716358-7 (Version None)
Quarter: 2008Q2

REPORT INFORMATION
  Report Type: 
  Country: None (occurrence: None)
  Receive Date: 20080424
  Receipt Date: 20080417
  Transmission Date: 20081010
  Serious: Yes (Other)
  Sender: FDA-Public Use
  Company Number: JP-BRISTOL-MYERS SQUIBB COMPANY-14083554

PATIENT
  Age: 52 Year
  Sex: Female
  Weight: 38 kg

DRUGS (8)
  1. ABATACEPT [Suspect]
     Indication: RHEUMATOID ARTHRITIS
     Dosage: INTERRUPTED ON 23JAN08
     Route: 041
     Dates: start: 20070516, end: 20080123
  2. CLINORIL [Suspect]
     Indication: RHEUMATOID ARTHRITIS
     Dosage: FORMULATION: TAB
     Route: 048
     Dates: end: 20080310
  3. INTEBAN [Suspect]
     Indication: RHEUMATOID ARTHRITIS
     Dosage: FORMULATION: OINTMENT
     Route: 062
     Dates: start: 20060904, end: 20080413
  4. RHEUMATREX [Suspect]
     Indication: RHEUMATOID ARTHRITIS
     Dosage: FORMULATION: CAP
     Route: 048
     Dates: end: 20080310
  5. KETOPROFEN [Suspect]
     Indication: RHEUMATOID ARTHRITIS
     Dosage: FORMULATION: TAP
     Route: 061
  6. PREDONINE [Concomitant]
     Indication: RHEUMATOID ARTHRITIS
     Dosage: FORMULATION: TAB
     Route: 048
     Dates: end: 20080310
  7. PROMAC [Concomitant]
     Indication: GASTRITIS PROPHYLAXIS
     Dosage: FORMULATION: GRA
     Route: 048
     Dates: end: 20080310
  8. SELBEX [Concomitant]
     Indication: GASTRITIS PROPHYLAXIS
     Dosage: FORMULATION: TAB
     Route: 048
     Dates: end: 20080310

REACTIONS (1)
  - GASTRIC CANCER [None]
